FAERS Safety Report 7735125-6 (Version None)
Quarter: 2011Q3

REPORT INFORMATION
  Report Type: 
  Country: None (occurrence: None)
  Receive Date: 20110907
  Receipt Date: 20110831
  Transmission Date: 20111222
  Serious: Yes (Other)
  Sender: FDA-Public Use
  Company Number: HU-PFIZER INC-2011203999

PATIENT
  Age: 57 Year
  Sex: Female
  Weight: 84 kg

DRUGS (16)
  1. PERINDOPRIL [Concomitant]
     Dosage: UNK
  2. LYRICA [Suspect]
     Dosage: 75 MG, 2X/DAY
     Dates: start: 20110501, end: 20110601
  3. BISOPROLOL [Concomitant]
     Dosage: UNK
  4. FURON [Concomitant]
     Dosage: UNK
  5. KALIUM DURULES [Concomitant]
     Dosage: UNK
  6. ROSUVASTATIN [Concomitant]
     Dosage: UNK
  7. TENSIOMIN [Concomitant]
     Dosage: UNK
  8. ISOPTIN [Concomitant]
     Dosage: UNK
  9. LANTUS [Concomitant]
  10. INDAPAMIDE/PERINDOPRIL ARGININE [Concomitant]
     Dosage: UNK
  11. PIROXICAM [Concomitant]
     Dosage: UNK
  12. METFORMIN [Concomitant]
     Dosage: UNK
  13. CLOPIDOGREL [Concomitant]
     Dosage: UNK
  14. ADEXOR [Concomitant]
     Dosage: UNK
  15. PANTOPRAZOLE [Concomitant]
     Dosage: UNK
  16. ALPRAZOLAM [Concomitant]
     Dosage: UNK

REACTIONS (2)
  - BLOOD PRESSURE FLUCTUATION [None]
  - EYE SWELLING [None]
